FAERS Safety Report 24985083 (Version 1)
Quarter: 2025Q1

REPORT INFORMATION
  Report Type: Spontaneous
  Country: CN (occurrence: CN)
  Receive Date: 20250219
  Receipt Date: 20250219
  Transmission Date: 20250408
  Serious: Yes (Hospitalization, Other)
  Sender: STRIDES
  Company Number: CN-STRIDES ARCOLAB LIMITED-2025SP002153

PATIENT
  Age: 68 Year
  Sex: Female

DRUGS (12)
  1. TACROLIMUS [Interacting]
     Active Substance: TACROLIMUS
     Indication: Prophylaxis against transplant rejection
     Route: 048
  2. TACROLIMUS [Interacting]
     Active Substance: TACROLIMUS
     Route: 065
  3. PAXLOVID [Interacting]
     Active Substance: NIRMATRELVIR\RITONAVIR
     Indication: COVID-19 pneumonia
     Route: 065
  4. DALTEPARIN [Interacting]
     Active Substance: DALTEPARIN
     Indication: Thrombosis prophylaxis
     Route: 058
  5. MYCOPHENOLATE MOFETIL [Concomitant]
     Active Substance: MYCOPHENOLATE MOFETIL
     Indication: Prophylaxis against transplant rejection
     Route: 048
  6. METHYLPREDNISOLONE [Concomitant]
     Active Substance: METHYLPREDNISOLONE
     Indication: Prophylaxis against transplant rejection
     Route: 048
  7. PROTAMINE [Concomitant]
     Active Substance: PROTAMINE
     Indication: Blood pressure management
     Route: 065
  8. PROTAMINE [Concomitant]
     Active Substance: PROTAMINE
     Indication: Anaemia
  9. PROTAMINE [Concomitant]
     Active Substance: PROTAMINE
     Indication: Coagulation factor level abnormal
  10. DOPAMINE [Concomitant]
     Active Substance: DOPAMINE HYDROCHLORIDE
     Indication: Blood pressure management
     Route: 065
  11. DOPAMINE [Concomitant]
     Active Substance: DOPAMINE HYDROCHLORIDE
     Indication: Coagulation factor level abnormal
  12. DOPAMINE [Concomitant]
     Active Substance: DOPAMINE HYDROCHLORIDE
     Indication: Anaemia

REACTIONS (5)
  - Renal haemorrhage [Recovered/Resolved]
  - Drug interaction [Unknown]
  - Coagulopathy [Recovered/Resolved]
  - Toxicity to various agents [Recovered/Resolved]
  - Acute kidney injury [Recovered/Resolved]
